FAERS Safety Report 4469280-0 (Version None)
Quarter: 2004Q4

REPORT INFORMATION
  Report Type: 
  Country: None (occurrence: None)
  Receive Date: 20041008
  Receipt Date: 20030829
  Transmission Date: 20050328
  Serious: No
  Sender: FDA-Public Use
  Company Number: US-BRISTOL-MYERS SQUIBB COMPANY-12370763

PATIENT
  Age: 62 Year
  Sex: Female
  Weight: 83 kg

DRUGS (7)
  1. AVAPRO [Suspect]
     Indication: HYPERTENSION
     Dosage: DOSE TAKEN AT NOON
     Route: 048
     Dates: start: 20030815
  2. GLYBURIDE [Concomitant]
  3. LANOXIN [Concomitant]
  4. COREG [Concomitant]
  5. ZOCOR [Concomitant]
  6. LASIX [Concomitant]
  7. ISOSORBIDE [Concomitant]

REACTIONS (2)
  - PHOTOPHOBIA [None]
  - VISUAL DISTURBANCE [None]
